FAERS Safety Report 5548123-8 (Version None)
Quarter: 2007Q4

REPORT INFORMATION
  Report Type: 
  Country: None (occurrence: None)
  Receive Date: 20071128
  Receipt Date: 20070507
  Transmission Date: 20080405
  Serious: Yes (Congenital Anomaly)
  Sender: FDA-Public Use
  Company Number: 2007020037

PATIENT
  Age: 59 Year
  Sex: Male

DRUGS (2)
  1. LIPITOR [Suspect]
     Indication: LOW DENSITY LIPOPROTEIN INCREASED
     Dosage: 10 MG (DAILY), ORAL
     Route: 048
     Dates: start: 20050101, end: 20070101
  2. ACETYLSALICYLIC ACID SRT [Concomitant]

REACTIONS (1)
  - MYOSITIS [None]
